FAERS Safety Report 7779607-X (Version None)
Quarter: 2011Q3

REPORT INFORMATION
  Report Type: 
  Country: None (occurrence: None)
  Receive Date: 20110927
  Receipt Date: 20110921
  Transmission Date: 20111222
  Serious: Yes (Death)
  Sender: FDA-Public Use
  Company Number: CA-CELGENEUS-028-21880-11092563

PATIENT
  Sex: Female

DRUGS (4)
  1. SYNTHROID [Concomitant]
     Route: 065
  2. DEXAMETHASONE [Concomitant]
     Dosage: 40 MILLIGRAM
     Route: 065
  3. ASPIRIN [Concomitant]
     Dosage: 81 MILLIGRAM
     Route: 065
  4. REVLIMID [Suspect]
     Dosage: 15 MILLIGRAM
     Route: 048

REACTIONS (1)
  - DEATH [None]
